FAERS Safety Report 5811867-4 (Version None)
Quarter: 2008Q3

REPORT INFORMATION
  Report Type: 
  Country: None (occurrence: None)
  Receive Date: 20080716
  Receipt Date: 20080707
  Transmission Date: 20090109
  Serious: Yes (Death, Hospitalization, Other)
  Sender: FDA-Public Use
  Company Number: US-BAYER-US-2007-042541

PATIENT
  Age: 53 Year
  Sex: Female

DRUGS (3)
  1. CAMPATH [Suspect]
     Indication: CHRONIC LYMPHOCYTIC LEUKAEMIA
     Dates: start: 20060410, end: 20060519
  2. FLUDARA [Suspect]
     Indication: CHRONIC LYMPHOCYTIC LEUKAEMIA
     Route: 042
  3. RITUXAN [Suspect]
     Indication: CHRONIC LYMPHOCYTIC LEUKAEMIA
     Route: 042

REACTIONS (21)
  - ACUTE RESPIRATORY DISTRESS SYNDROME [None]
  - ANAEMIA HAEMOLYTIC AUTOIMMUNE [None]
  - ARTHRITIS BACTERIAL [None]
  - CLOSTRIDIUM DIFFICILE COLITIS [None]
  - CYTOMEGALOVIRUS TEST POSITIVE [None]
  - DEEP VEIN THROMBOSIS [None]
  - DIZZINESS [None]
  - GLOMERULONEPHROPATHY [None]
  - GRANULOCYTES ABNORMAL [None]
  - HAEMOGLOBIN DECREASED [None]
  - HAEMOLYSIS [None]
  - HEADACHE [None]
  - LYMPHOPENIA [None]
  - NEUTROPENIA [None]
  - PLATELET COUNT DECREASED [None]
  - PNEUMOCYSTIS JIROVECI INFECTION [None]
  - PULMONARY EMBOLISM [None]
  - RENAL FAILURE [None]
  - STAPHYLOCOCCAL BACTERAEMIA [None]
  - TRIGEMINAL NERVE DISORDER [None]
  - WHITE BLOOD CELL COUNT DECREASED [None]
